FAERS Safety Report 22245901 (Version 1)
Quarter: 2023Q2

REPORT INFORMATION
  Report Type: Spontaneous
  Country: US (occurrence: US)
  Receive Date: 20230424
  Receipt Date: 20230424
  Transmission Date: 20230722
  Serious: Yes (Death, Other)
  Sender: FDA-Public Use
  Company Number: US-AMGEN-USASP2023068215

PATIENT
  Sex: Male

DRUGS (3)
  1. RITUXIMAB [Suspect]
     Active Substance: RITUXIMAB
     Indication: Transplant rejection
     Dosage: UNK
     Route: 065
  2. BORTEZOMIB [Concomitant]
     Active Substance: BORTEZOMIB
     Indication: Transplant rejection
     Dosage: UNK
     Route: 065
  3. Immunoglobulin [Concomitant]
     Indication: Transplant rejection
     Dosage: UNK
     Route: 042

REACTIONS (6)
  - Cardiac arrest [Fatal]
  - Coronary artery disease [Fatal]
  - Myocardial haemorrhage [Unknown]
  - Cardiac disorder [Unknown]
  - Drug ineffective for unapproved indication [Unknown]
  - Off label use [Unknown]

NARRATIVE: CASE EVENT DATE: 20220201
